FAERS Safety Report 11570839 (Version 1)
Quarter: 2015Q3

REPORT INFORMATION
  Report Type: Spontaneous
  Country: US (occurrence: US)
  Receive Date: 20150929
  Receipt Date: 20150929
  Transmission Date: 20151125
  Serious: No
  Sender: FDA-Public Use
  Company Number: US-009507513-1509USA012646

PATIENT
  Sex: Female

DRUGS (4)
  1. FORTEO [Suspect]
     Active Substance: TERIPARATIDE
     Dosage: DAILY SHOTS
  2. RECLAST [Suspect]
     Active Substance: ZOLEDRONIC ACID
     Dosage: TWICE A YEAR
     Route: 042
  3. FOSAMAX [Suspect]
     Active Substance: ALENDRONATE SODIUM
     Dosage: ONE PER MONTH
     Route: 048
  4. BONIVA [Suspect]
     Active Substance: IBANDRONATE SODIUM
     Dosage: ONCE PER WEEK

REACTIONS (2)
  - Adverse drug reaction [Unknown]
  - Inappropriate schedule of drug administration [Unknown]
